FAERS Safety Report 16095381 (Version 1)
Quarter: 2019Q1

REPORT INFORMATION
  Report Type: Spontaneous
  Country: FR (occurrence: FR)
  Receive Date: 20190320
  Receipt Date: 20190320
  Transmission Date: 20190418
  Serious: Yes (Other)
  Sender: FDA-Public Use
  Company Number: FR-SA-2019SA076915

PATIENT
  Age: 32 Year
  Sex: Female

DRUGS (1)
  1. CLOMID [Suspect]
     Active Substance: CLOMIPHENE CITRATE
     Indication: OVULATION DISORDER
     Dosage: UNK

REACTIONS (10)
  - Crying [Unknown]
  - Urticaria [Recovered/Resolved]
  - Photopsia [Unknown]
  - Pruritus [Unknown]
  - Visual impairment [Not Recovered/Not Resolved]
  - Euphoric mood [Unknown]
  - Depression [Unknown]
  - Halo vision [Unknown]
  - Suicidal ideation [Unknown]
  - Wound [Unknown]
